FAERS Safety Report 5050723-9 (Version None)
Quarter: 2006Q3

REPORT INFORMATION
  Report Type: 
  Country: None (occurrence: None)
  Receive Date: 20060713
  Receipt Date: 20060706
  Transmission Date: 20061208
  Serious: Yes (Other)
  Sender: FDA-Public Use
  Company Number: US-BRISTOL-MYERS SQUIBB COMPANY-13434733

PATIENT
  Age: 6 Decade
  Sex: Female

DRUGS (7)
  1. ERBITUX [Suspect]
     Indication: COLORECTAL CANCER
     Route: 042
  2. AVASTIN [Concomitant]
  3. COUMADIN [Concomitant]
  4. TYLENOL (CAPLET) [Concomitant]
     Indication: PREMEDICATION
  5. TAGAMET [Concomitant]
     Indication: PREMEDICATION
  6. BENADRYL [Concomitant]
     Indication: PREMEDICATION
  7. DECADRON [Concomitant]
     Indication: PREMEDICATION

REACTIONS (5)
  - CHEST DISCOMFORT [None]
  - CHEST PAIN [None]
  - ELECTROCARDIOGRAM CHANGE [None]
  - HYPERSENSITIVITY [None]
  - RESPIRATORY ARREST [None]
